FAERS Safety Report 21301352 (Version 2)
Quarter: 2022Q3

REPORT INFORMATION
  Report Type: Spontaneous
  Country: CA (occurrence: None)
  Receive Date: 20220907
  Receipt Date: 20220912
  Transmission Date: 20221027
  Serious: Yes (Other)
  Sender: FDA-Public Use
  Company Number: CA-Orion Corporation ORION PHARMA-TREX2019-3539

PATIENT
  Age: 55 Year
  Sex: Female

DRUGS (5)
  1. METHOTREXATE [Suspect]
     Active Substance: METHOTREXATE
     Indication: Rheumatoid arthritis
     Route: 065
  2. XELJANZ [Suspect]
     Active Substance: TOFACITINIB CITRATE
     Indication: Rheumatoid arthritis
     Route: 048
  3. XELJANZ [Suspect]
     Active Substance: TOFACITINIB CITRATE
     Route: 048
     Dates: start: 20190824
  4. FOLIC ACID [Concomitant]
     Active Substance: FOLIC ACID
     Route: 065
  5. LIPITOR [Concomitant]
     Active Substance: ATORVASTATIN CALCIUM
     Route: 065

REACTIONS (10)
  - Condition aggravated [Unknown]
  - Foot operation [Not Recovered/Not Resolved]
  - Limb operation [Not Recovered/Not Resolved]
  - Product dose omission in error [Unknown]
  - Dermatitis contact [Not Recovered/Not Resolved]
  - Herpes zoster [Not Recovered/Not Resolved]
  - Visual impairment [Not Recovered/Not Resolved]
  - Infection [Unknown]
  - Feeling hot [Unknown]
  - Dizziness [Unknown]
